FAERS Safety Report 20685010 (Version 1)
Quarter: 2022Q2

REPORT INFORMATION
  Report Type: Report from Study
  Country: JP (occurrence: JP)
  Receive Date: 20220407
  Receipt Date: 20220407
  Transmission Date: 20220720
  Serious: Yes (Hospitalization)
  Sender: FDA-Public Use
  Company Number: JP-UCBJ-CD202201740UCBPHAPROD

PATIENT
  Age: 62 Year
  Sex: Female

DRUGS (8)
  1. LACOSAMIDE [Suspect]
     Active Substance: LACOSAMIDE
     Indication: Simple partial seizures
     Dosage: 50 MILLIGRAM, 2X/DAY (BID)
     Route: 048
     Dates: start: 20181201
  2. LACOSAMIDE [Suspect]
     Active Substance: LACOSAMIDE
     Indication: Partial seizures with secondary generalisation
     Dosage: 100 MILLIGRAM, 2X/DAY (BID)
     Route: 048
     Dates: start: 20181205
  3. LACOSAMIDE [Suspect]
     Active Substance: LACOSAMIDE
     Indication: Epilepsy
     Dosage: 200 MILLIGRAM, 2X/DAY (BID)
     Route: 048
     Dates: start: 20190301
  4. LACOSAMIDE [Suspect]
     Active Substance: LACOSAMIDE
     Dosage: 150 MILLIGRAM, 2X/DAY (BID)
     Route: 048
     Dates: start: 20190304
  5. LACOSAMIDE [Suspect]
     Active Substance: LACOSAMIDE
     Dosage: 50 MILLIGRAM, 2X/DAY (BID)
     Route: 048
     Dates: start: 20191005
  6. LACOSAMIDE [Suspect]
     Active Substance: LACOSAMIDE
     Dosage: 200 MILLIGRAM, 2X/DAY (BID)
     Route: 048
     Dates: start: 20191101
  7. LEVETIRACETAM [Concomitant]
     Active Substance: LEVETIRACETAM
     Indication: Simple partial seizures
     Dosage: 1000 MILLIGRAM, ONCE DAILY (QD)
     Route: 041
     Dates: start: 20190228, end: 20190301
  8. LEVETIRACETAM [Concomitant]
     Active Substance: LEVETIRACETAM
     Indication: Partial seizures with secondary generalisation

REACTIONS (1)
  - Simple partial seizures [Recovered/Resolved]

NARRATIVE: CASE EVENT DATE: 20190201
